FAERS Safety Report 16642359 (Version 1)
Quarter: 2019Q3

REPORT INFORMATION
  Report Type: Spontaneous
  Country: US (occurrence: US)
  Receive Date: 20190725
  Receipt Date: 20190725
  Transmission Date: 20191004
  Serious: Yes (Other)
  Sender: FDA-Public Use
  Company Number: None

PATIENT
  Sex: Male

DRUGS (1)
  1. COL OPTIC WHITE PROF KIT IN-OFFICE (35% HYDROGEN PEROXIDE) [Suspect]
     Active Substance: HYDROGEN PEROXIDE

REACTIONS (7)
  - Lip swelling [None]
  - Oral discomfort [None]
  - Facial pain [None]
  - Gingival discomfort [None]
  - Dental cosmetic procedure [None]
  - Swelling face [None]
  - Procedural complication [None]

NARRATIVE: CASE EVENT DATE: 20190718
